FAERS Safety Report 23185660 (Version 1)
Quarter: 2023Q4

REPORT INFORMATION
  Report Type: Report from Study
  Country: US (occurrence: None)
  Receive Date: 20231115
  Receipt Date: 20231115
  Transmission Date: 20240110
  Serious: Yes (Death)
  Sender: FDA-Public Use
  Company Number: 2023A258127

PATIENT
  Age: 28792 Day
  Sex: Male
  Weight: 68.5 kg

DRUGS (10)
  1. LYNPARZA [Suspect]
     Active Substance: OLAPARIB
     Indication: Prostate cancer
     Route: 048
     Dates: start: 20230911
  2. ACETAMINOPHEN [Concomitant]
     Active Substance: ACETAMINOPHEN
  3. DEXAMETHASONE [Concomitant]
     Active Substance: DEXAMETHASONE
  4. SODIUM CITRATE [Concomitant]
     Active Substance: SODIUM CITRATE
  5. SPIRONOLACTONE [Concomitant]
     Active Substance: SPIRONOLACTONE
  6. METOPROLOL TARTRATE [Concomitant]
     Active Substance: METOPROLOL TARTRATE
  7. CURCUPLEX [Concomitant]
  8. LIZOPEN [Concomitant]
  9. ASPARAGUS [Concomitant]
     Active Substance: ASPARAGUS
  10. ALOE VERA LEAF [Concomitant]
     Active Substance: ALOE VERA LEAF

REACTIONS (1)
  - Death [Fatal]

NARRATIVE: CASE EVENT DATE: 20231031
